FAERS Safety Report 7704609 (Version 1)
Quarter: 2020Q3

REPORT INFORMATION
  Report Type: Spontaneous
  Country: GR (occurrence: GR)
  Receive Date: 20101213
  Receipt Date: 20101213
  Transmission Date: 20201104
  Serious: Yes (Other)
  Sender: FDA-Public Use
  Company Number: GR-PFIZER INC-2010165662

PATIENT
  Age: 43 Year
  Sex: Male

DRUGS (2)
  1. SUTENT [Suspect]
     Active Substance: SUNITINIB MALATE
     Indication: RENAL CELL CARCINOMA STAGE II
     Dosage: 50 MG, 1X/DAYS X 4 WEEKS ON, 2 WEEKS OFF
     Dates: start: 20070801
  2. IBANDRONIC ACID. [Suspect]
     Active Substance: IBANDRONIC ACID

REACTIONS (15)
  - Palmar-plantar erythrodysaesthesia syndrome [Unknown]
  - Hypertension [Unknown]
  - Hyperlipidaemia [Unknown]
  - Hypomagnesaemia [Unknown]
  - Abdominal pain upper [Unknown]
  - Diarrhoea [Unknown]
  - Hair colour changes [Unknown]
  - Teething [Unknown]
  - Electrocardiogram QT prolonged [Unknown]
  - Fatigue [Unknown]
  - Cough [Unknown]
  - Dyspnoea [Unknown]
  - Arrhythmia [Unknown]
  - Abdominal discomfort [Unknown]
  - Stomatitis [Unknown]

NARRATIVE: CASE EVENT DATE: 20070101
